FAERS Safety Report 8878670 (Version 2)
Quarter: 2012Q4

REPORT INFORMATION
  Report Type: 
  Country: US (occurrence: US)
  Receive Date: 20121026
  Receipt Date: 20121109
  Transmission Date: 20130627
  Serious: Yes (Other)
  Sender: FDA-Public Use
  Company Number: PHEH2012US020819

PATIENT
  Sex: Female

DRUGS (7)
  1. DIOVAN [Suspect]
     Dosage: 160 mg, BID
     Route: 048
  2. NORVASC [Concomitant]
  3. HCT [Concomitant]
     Dosage: 0.5 DF, UNK
  4. COUMADIN [Concomitant]
  5. LEVOTHROID [Concomitant]
     Dosage: 50 ug, UNK
  6. CALCIUM [Concomitant]
  7. MULTIVITAMIN [Concomitant]

REACTIONS (1)
  - Arrhythmia [Unknown]
